FAERS Safety Report 9379247 (Version 4)
Quarter: 2013Q3

REPORT INFORMATION
  Report Type: Spontaneous
  Country: US (occurrence: US)
  Receive Date: 20130702
  Receipt Date: 20130918
  Transmission Date: 20140515
  Serious: Yes (Death, Hospitalization, Other)
  Sender: FDA-Public Use
  Company Number: US-ASTELLAS-2013US006810

PATIENT
  Age: 71 Year
  Sex: Male

DRUGS (1)
  1. XTANDI [Suspect]
     Indication: PROSTATE CANCER
     Dosage: 160 MG, UID/QD
     Route: 048
     Dates: start: 20121217, end: 20130622

REACTIONS (6)
  - Syncope [Unknown]
  - Injury [Unknown]
  - Muscle haemorrhage [Unknown]
  - Cardiac arrest [Fatal]
  - Contusion [Unknown]
  - Fall [Unknown]
